FAERS Safety Report 9220296 (Version 2)
Quarter: 2013Q3

REPORT INFORMATION
  Report Type: Report from Study
  Country: US (occurrence: US)
  Receive Date: 20130409
  Receipt Date: 20130709
  Transmission Date: 20140515
  Serious: Yes (Other)
  Sender: FDA-Public Use
  Company Number: US-ROCHE-1211738

PATIENT
  Age: 13 Year
  Sex: Male
  Weight: 52.21 kg

DRUGS (2)
  1. XOLAIR [Suspect]
     Indication: ASTHMA
     Route: 058
     Dates: start: 20120501
  2. PREVACID [Concomitant]

REACTIONS (1)
  - Benign intracranial hypertension [Not Recovered/Not Resolved]
